FAERS Safety Report 5163184-6 (Version None)
Quarter: 2006Q4

REPORT INFORMATION
  Report Type: 
  Country: None (occurrence: None)
  Receive Date: 20061204
  Receipt Date: 20061121
  Transmission Date: 20070319
  Serious: Yes (Hospitalization)
  Sender: FDA-Public Use
  Company Number: JP-JNJFOC-20061003365

PATIENT
  Sex: Male

DRUGS (13)
  1. RISPERDAL [Suspect]
     Route: 048
  2. RISPERDAL [Suspect]
     Route: 048
  3. RISPERDAL [Suspect]
     Indication: SCHIZOPHRENIA
     Route: 048
  4. CIPROFLOXACIN [Suspect]
     Indication: PNEUMONIA
  5. GASTER [Suspect]
     Indication: PROPHYLAXIS AGAINST GASTROINTESTINAL ULCER
  6. LASIX [Suspect]
     Indication: HYPERTENSION
  7. GLYCYRRHIZIN [Suspect]
     Indication: HEPATIC FUNCTION ABNORMAL
  8. GLYCINE HCL [Suspect]
     Indication: HEPATIC FUNCTION ABNORMAL
  9. CYSTEINE [Suspect]
     Indication: HEPATIC FUNCTION ABNORMAL
  10. ALDACTONE [Suspect]
     Indication: HYPERTENSION
  11. PREDONINE [Concomitant]
     Indication: PERIPHERAL CIRCULATORY FAILURE
  12. ENTERONON-R [Concomitant]
     Indication: DISBACTERIOSIS
  13. DIPRIVAN [Concomitant]

REACTIONS (1)
  - TOXIC EPIDERMAL NECROLYSIS [None]
